FAERS Safety Report 13088887 (Version 1)
Quarter: 2016Q4

REPORT INFORMATION
  Report Type: Spontaneous
  Country: US (occurrence: US)
  Receive Date: 20161231
  Receipt Date: 20161231
  Transmission Date: 20170207
  Serious: Yes (Other)
  Sender: FDA-Public Use
  Company Number: None

PATIENT
  Age: 51 Year
  Weight: 64.35 kg

DRUGS (5)
  1. MULTI VITAMIN [Concomitant]
     Active Substance: VITAMINS
  2. IRON [Concomitant]
     Active Substance: IRON
  3. VITAMIN E [Concomitant]
     Active Substance: .ALPHA.-TOCOPHEROL
  4. EQUATE ALLERGY RELIEF (FEXOFENADINE HYDROCHLORIDE) [Suspect]
     Active Substance: FEXOFENADINE HYDROCHLORIDE
     Indication: MULTIPLE ALLERGIES
     Dosage: ?          QUANTITY:1 CAPSULE(S);?
     Route: 048
  5. B SUPPLEMENT [Concomitant]

REACTIONS (3)
  - Palpitations [None]
  - Product substitution issue [None]
  - Hypertension [None]

NARRATIVE: CASE EVENT DATE: 20161217
